FAERS Safety Report 9360927 (Version 2)
Quarter: 2013Q2

REPORT INFORMATION
  Report Type: Spontaneous
  Country: US (occurrence: None)
  Receive Date: 20130618
  Receipt Date: 20130628
  Transmission Date: 20140414
  Serious: Yes (Hospitalization, Other)
  Sender: FDA-Public Use
  Company Number: ACO_36680_2013

PATIENT
  Sex: Female
  Weight: 74.8 kg

DRUGS (2)
  1. AMPYRA (DALFAMPRIDINE) TABLET, 10MG [Suspect]
     Indication: MULTIPLE SCLEROSIS
     Dates: start: 2011
  2. REBIF (INTERFERON BETA-1A) [Concomitant]

REACTIONS (3)
  - Hip fracture [None]
  - Fall [None]
  - Hypertension [None]
